FAERS Safety Report 6120246-4 (Version None)
Quarter: 2009Q1

REPORT INFORMATION
  Report Type: 
  Country: None (occurrence: None)
  Receive Date: 20090312
  Receipt Date: 20090226
  Transmission Date: 20090719
  Serious: Yes (Hospitalization, Other)
  Sender: FDA-Public Use
  Company Number: 2009SP000609

PATIENT
  Sex: Female

DRUGS (16)
  1. XOPENEX [Suspect]
     Indication: ASTHMA
     Dosage: 1.25 MG/3ML; QID; INHALATION
     Route: 055
     Dates: start: 20040101
  2. XOPENEX HFA INHALATION [Concomitant]
  3. AEROSOL [Concomitant]
  4. METOPROLOL TARTRATE [Concomitant]
  5. WARFARIN SODIUM [Concomitant]
  6. CARTIA XT [Concomitant]
  7. ACTONEL [Concomitant]
  8. XANAX [Concomitant]
  9. ULTRAM [Concomitant]
  10. ADVAIR HFA [Concomitant]
  11. SPIRIVA [Concomitant]
  12. LORATADINE [Concomitant]
  13. NASONEX [Concomitant]
  14. PRILOSEC [Concomitant]
  15. COLACE [Concomitant]
  16. PREV MEDS [Concomitant]

REACTIONS (9)
  - ATRIAL FIBRILLATION [None]
  - DYSGEUSIA [None]
  - HERNIA REPAIR [None]
  - INTESTINAL OBSTRUCTION [None]
  - LEUKOPLAKIA [None]
  - NAUSEA [None]
  - NO THERAPEUTIC RESPONSE [None]
  - SUPRAVENTRICULAR TACHYCARDIA [None]
  - VOMITING [None]
